FAERS Safety Report 10150155 (Version 1)
Quarter: 2014Q2

REPORT INFORMATION
  Report Type: Spontaneous
  Country: ZA (occurrence: ZA)
  Receive Date: 20140502
  Receipt Date: 20140502
  Transmission Date: 20141212
  Serious: Yes (Hospitalization)
  Sender: FDA-Public Use
  Company Number: ZA-GLAXOSMITHKLINE-B0988883A

PATIENT
  Sex: Male
  Weight: 19 kg

DRUGS (1)
  1. LAMICTIN [Suspect]
     Indication: EPILEPSY
     Dosage: 10MG PER DAY
     Route: 065

REACTIONS (6)
  - Stevens-Johnson syndrome [Unknown]
  - Arthralgia [Unknown]
  - Tonsillitis [Unknown]
  - Pyrexia [Unknown]
  - Muscle strain [Unknown]
  - Rash [Unknown]
